FAERS Safety Report 6347600-X (Version None)
Quarter: 2009Q3

REPORT INFORMATION
  Report Type: 
  Country: None (occurrence: None)
  Receive Date: 20090831
  Receipt Date: 20090831
  Transmission Date: 20100115
  Serious: Yes (Other)
  Sender: FDA-Public Use
  Company Number: None

PATIENT
  Sex: Female

DRUGS (2)
  1. NUPERCAINAL (NCH) (CINCHOCAINE) OINTMENT [Suspect]
     Indication: HAEMORRHOIDS
     Dates: end: 20080101
  2. NUPERCAINAL (NCH) (CINCHOCAINE) OINTMENT [Suspect]
     Indication: PAIN
     Dates: end: 20080101

REACTIONS (1)
  - SURGERY [None]
